FAERS Safety Report 5202255-2 (Version None)
Quarter: 2007Q1

REPORT INFORMATION
  Report Type: 
  Country: None (occurrence: None)
  Receive Date: 20070109
  Receipt Date: 20070105
  Transmission Date: 20070707
  Serious: Yes (Other)
  Sender: FDA-Public Use
  Company Number: US-GLAXOSMITHKLINE-A0634475A

PATIENT
  Age: 64 Year
  Sex: Female

DRUGS (5)
  1. PAXIL CR [Suspect]
     Indication: DEPRESSION
     Dosage: 25MG PER DAY
     Route: 048
     Dates: end: 20060801
  2. ACTIQ [Concomitant]
  3. MORPHINE [Concomitant]
  4. UNSPECIFIED MEDICATION [Concomitant]
  5. NEURONTIN [Concomitant]

REACTIONS (1)
  - SUICIDAL IDEATION [None]
